FAERS Safety Report 8601534-6 (Version None)
Quarter: 2012Q3

REPORT INFORMATION
  Report Type: 
  Country: None (occurrence: None)
  Receive Date: 20120817
  Receipt Date: 20120810
  Transmission Date: 20120928
  Serious: No
  Sender: FDA-Public Use
  Company Number: US-BAYER-2012-082465

PATIENT
  Age: 75 Year
  Sex: Female
  Weight: 56.689 kg

DRUGS (1)
  1. ALEVE (CAPLET) [Suspect]
     Indication: HEADACHE
     Dosage: 1 DF, ONCE
     Route: 048
     Dates: start: 20120810, end: 20120810

REACTIONS (2)
  - FOREIGN BODY [None]
  - THROAT IRRITATION [None]
